FAERS Safety Report 6120895-3 (Version None)
Quarter: 2009Q1

REPORT INFORMATION
  Report Type: 
  Country: None (occurrence: None)
  Receive Date: 20090317
  Receipt Date: 20090309
  Transmission Date: 20090719
  Serious: No
  Sender: FDA-Public Use
  Company Number: CA-PFIZER INC-2009163626

PATIENT
  Age: 53 Year
  Sex: Male

DRUGS (3)
  1. CELEBREX [Suspect]
     Indication: ARTHRITIS
     Dosage: UNK
     Route: 048
     Dates: start: 20060101, end: 20060101
  2. PERCOCET [Concomitant]
     Dosage: UNK
     Route: 048
     Dates: start: 19820101
  3. TRIAZOLAM [Concomitant]
     Dosage: 0.25 MG, 2X/DAY

REACTIONS (4)
  - HEADACHE [None]
  - MALAISE [None]
  - NAUSEA [None]
  - VOMITING [None]
